FAERS Safety Report 5542060-0 (Version None)
Quarter: 2007Q4

REPORT INFORMATION
  Report Type: 
  Country: None (occurrence: None)
  Receive Date: 20071210
  Receipt Date: 20071205
  Transmission Date: 20080405
  Serious: Yes (Disabling)
  Sender: FDA-Public Use
  Company Number: US-ASTRAZENECA-2007UW14860

PATIENT
  Age: 57 Year
  Sex: Male
  Weight: 134.1 kg

DRUGS (5)
  1. ZOLADEX [Suspect]
     Indication: PROSTATE CANCER
     Route: 058
  2. HYDROCHLOROTHIAZIDE [Concomitant]
  3. MONOPRIL [Concomitant]
  4. LIPITOR [Concomitant]
  5. VITAMIN CAP [Concomitant]

REACTIONS (8)
  - ANDROGEN DEFICIENCY [None]
  - ERECTILE DYSFUNCTION [None]
  - GYNAECOMASTIA [None]
  - HAIR GROWTH ABNORMAL [None]
  - HOT FLUSH [None]
  - HYPOGONADISM MALE [None]
  - NOCTURIA [None]
  - WEIGHT LOSS POOR [None]
